FAERS Safety Report 21066151 (Version 2)
Quarter: 2022Q4

REPORT INFORMATION
  Report Type: Spontaneous
  Country: US (occurrence: US)
  Receive Date: 20220711
  Receipt Date: 20221005
  Transmission Date: 20230113
  Serious: No
  Sender: FDA-Public Use
  Company Number: US-INTRA-CELLULAR THERAPIES, INC.-2022ICT00594

PATIENT
  Age: 50 Year
  Sex: Female

DRUGS (1)
  1. CAPLYTA [Suspect]
     Active Substance: LUMATEPERONE
     Indication: Schizophreniform disorder
     Dosage: 42 MG, 1X/DAY
     Dates: start: 20220128, end: 20220424

REACTIONS (3)
  - Speech disorder [Recovered/Resolved]
  - Tongue movement disturbance [Recovered/Resolved]
  - Protrusion tongue [Recovered/Resolved]

NARRATIVE: CASE EVENT DATE: 20220424
